FAERS Safety Report 16112497 (Version 1)
Quarter: 2019Q1

REPORT INFORMATION
  Report Type: Spontaneous
  Country: US (occurrence: US)
  Receive Date: 20190325
  Receipt Date: 20190325
  Transmission Date: 20190418
  Serious: No
  Sender: FDA-Public Use
  Company Number: US-PFIZER INC-2018502414

PATIENT
  Age: 69 Year
  Sex: Female
  Weight: 72.57 kg

DRUGS (4)
  1. LYRICA CR [Suspect]
     Active Substance: PREGABALIN
     Indication: DIABETIC NEUROPATHY
     Dosage: 330 MG, UNK
  2. LYRICA CR [Suspect]
     Active Substance: PREGABALIN
     Indication: SPINAL CORD INJURY
  3. HYDROCODONE [Concomitant]
     Active Substance: HYDROCODONE
     Indication: SPINAL CORD INJURY
     Dosage: 20 MG, 1X/DAY
  4. LYRICA CR [Suspect]
     Active Substance: PREGABALIN
     Indication: NEURALGIA
     Dosage: 1 DF, DAILY [1 DF, DAILY (ONE PILL A DAY)]

REACTIONS (3)
  - Cold sweat [Unknown]
  - Withdrawal syndrome [Unknown]
  - Hot flush [Unknown]
